FAERS Safety Report 8020723-5 (Version None)
Quarter: 2012Q1

REPORT INFORMATION
  Report Type: 
  Country: None (occurrence: None)
  Receive Date: 20120104
  Receipt Date: 20111222
  Transmission Date: 20120608
  Serious: Yes (Death, Life-Threatening, Hospitalization)
  Sender: FDA-Public Use
  Company Number: DE-BRISTOL-MYERS SQUIBB COMPANY-16314064

PATIENT
  Age: 66 Year
  Sex: Male

DRUGS (3)
  1. TORSEMIDE [Concomitant]
     Indication: CARDIAC FAILURE
     Route: 048
  2. COTRIM [Concomitant]
     Indication: URINARY TRACT INFECTION
     Route: 048
     Dates: start: 20110926, end: 20110927
  3. METFORMIN HCL [Suspect]
     Indication: DIABETES MELLITUS
     Route: 048

REACTIONS (9)
  - LACTIC ACIDOSIS [None]
  - DYSPNOEA [None]
  - BLOOD CREATININE INCREASED [None]
  - RENAL FAILURE ACUTE [None]
  - VOMITING [None]
  - NAUSEA [None]
  - DEATH [None]
  - HYPERKALAEMIA [None]
  - LABORATORY TEST ABNORMAL [None]
